FAERS Safety Report 5255702-4 (Version None)
Quarter: 2007Q1

REPORT INFORMATION
  Report Type: 
  Country: None (occurrence: None)
  Receive Date: 20070305
  Receipt Date: 20070221
  Transmission Date: 20070707
  Serious: Yes (Other)
  Sender: FDA-Public Use
  Company Number: US-PFIZER INC-2007014444

PATIENT
  Sex: Female
  Weight: 83.9 kg

DRUGS (7)
  1. LYRICA [Suspect]
     Indication: TRIGEMINAL NEURALGIA
  2. ATENOLOL [Concomitant]
  3. CLONIDINE [Concomitant]
  4. PROTONIX [Concomitant]
  5. BENTYL [Concomitant]
  6. XANAX [Concomitant]
  7. ZYRTEC [Concomitant]

REACTIONS (14)
  - BACK PAIN [None]
  - BALANCE DISORDER [None]
  - DEAFNESS TRANSITORY [None]
  - DIZZINESS [None]
  - DRY SKIN [None]
  - FALL [None]
  - FOOD CRAVING [None]
  - MUSCLE SPASMS [None]
  - OEDEMA PERIPHERAL [None]
  - PAIN [None]
  - SKIN FISSURES [None]
  - SOMNOLENCE [None]
  - VISION BLURRED [None]
  - WEIGHT INCREASED [None]
